FAERS Safety Report 22248770 (Version 2)
Quarter: 2023Q2

REPORT INFORMATION
  Report Type: Spontaneous
  Country: BR (occurrence: BR)
  Receive Date: 20230425
  Receipt Date: 20230508
  Transmission Date: 20230721
  Serious: No
  Sender: FDA-Public Use
  Company Number: BR-BAYER-2023A051723

PATIENT
  Age: 7 Year
  Sex: Female

DRUGS (1)
  1. EYLEA [Suspect]
     Active Substance: AFLIBERCEPT
     Indication: Exudative retinopathy
     Dosage: UNK, Q3MON (STRENGTH: 40MG/ML, FORMULATION: SOLUTION FOR INJECTION)
     Route: 031

REACTIONS (1)
  - Off label use [Unknown]
